FAERS Safety Report 5069429-5 (Version None)
Quarter: 2006Q3

REPORT INFORMATION
  Report Type: 
  Country: None (occurrence: None)
  Receive Date: 20060802
  Receipt Date: 20060802
  Transmission Date: 20061208
  Serious: Yes (Hospitalization)
  Sender: FDA-Public Use
  Company Number: None

PATIENT
  Age: 86 Year
  Sex: Male
  Weight: 82 kg

DRUGS (2)
  1. NORTRIPTYLINE HCL [Suspect]
     Dosage: 20 MG PO QHS
     Route: 048
     Dates: start: 20060425
  2. CARBAMAZEPINE [Suspect]
     Dosage: 100 MG PO BID
     Route: 048
     Dates: start: 20060425

REACTIONS (3)
  - ASTHENIA [None]
  - LETHARGY [None]
  - PAIN IN EXTREMITY [None]
